FAERS Safety Report 24224845 (Version 1)
Quarter: 2024Q3

REPORT INFORMATION
  Report Type: Spontaneous
  Country: FR (occurrence: FR)
  Receive Date: 20240819
  Receipt Date: 20240819
  Transmission Date: 20241017
  Serious: Yes (Hospitalization)
  Sender: BIOGEN
  Company Number: None

PATIENT
  Age: 38 Year
  Sex: Male
  Weight: 48 kg

DRUGS (1)
  1. SPINRAZA [Suspect]
     Active Substance: NUSINERSEN
     Indication: Spinal muscular atrophy
     Route: 050
     Dates: start: 20190101, end: 20240720

REACTIONS (2)
  - Nosocomial infection [Not Recovered/Not Resolved]
  - Meningitis staphylococcal [Not Recovered/Not Resolved]

NARRATIVE: CASE EVENT DATE: 20240719
